FAERS Safety Report 4494468-2 (Version None)
Quarter: 2004Q4

REPORT INFORMATION
  Report Type: 
  Country: None (occurrence: None)
  Receive Date: 20041102
  Receipt Date: 20041020
  Transmission Date: 20050328
  Serious: Yes (Hospitalization)
  Sender: FDA-Public Use
  Company Number: 2000038808HU

PATIENT
  Age: 71 Year
  Sex: Male

DRUGS (7)
  1. CAMPTOSAR [Suspect]
     Indication: COLON CANCER
     Dosage: SEE IMAGE
     Route: 042
     Dates: start: 20000720, end: 20001015
  2. CAMPTOSAR [Suspect]
     Indication: COLON CANCER
     Dosage: SEE IMAGE
     Route: 042
     Dates: start: 20001016, end: 20001031
  3. FLUOROURACIL [Suspect]
     Indication: COLON CANCER
     Dosage: 1160 SINGLE, IV BOLUS
     Route: 040
     Dates: start: 20000720, end: 20000720
  4. LEUCOVORIN CALCIUM [Suspect]
     Indication: COLON CANCER
     Dosage: 580 MG, CYCLE, IV
     Route: 042
     Dates: start: 20000720, end: 20001031
  5. FOLIC ACID [Concomitant]
  6. MEDROL [Concomitant]
  7. GEROVIT (ERGOCALCIFEROL) [Concomitant]

REACTIONS (10)
  - ALOPECIA [None]
  - ANOREXIA [None]
  - ASTHENIA [None]
  - DYSPHAGIA [None]
  - NEUTROPENIA [None]
  - OESOPHAGITIS [None]
  - ORAL INFECTION [None]
  - PYREXIA [None]
  - TOOTH EXTRACTION [None]
  - WEIGHT DECREASED [None]
